FAERS Safety Report 5725941-4 (Version None)
Quarter: 2008Q2

REPORT INFORMATION
  Report Type: 
  Country: None (occurrence: None)
  Receive Date: 20080501
  Receipt Date: 20080501
  Transmission Date: 20081010
  Serious: No
  Sender: FDA-Public Use
  Company Number: None

PATIENT
  Age: 34 Year
  Sex: Male

DRUGS (9)
  1. OXACILLIN [Suspect]
     Dates: start: 20050207, end: 20050210
  2. GENTAMICIN [Concomitant]
  3. KALETRA [Concomitant]
  4. ABACAVIR [Concomitant]
  5. TENOFOVIR [Concomitant]
  6. CEFEPIME [Concomitant]
  7. VANCOMYCIN [Concomitant]
  8. RIFAMPIN [Concomitant]
  9. CEFAZOLIN [Concomitant]

REACTIONS (12)
  - 5'NUCLEOTIDASE INCREASED [None]
  - ALANINE AMINOTRANSFERASE DECREASED [None]
  - ANAEMIA [None]
  - BLOOD ALKALINE PHOSPHATASE INCREASED [None]
  - DEATH OF RELATIVE [None]
  - DEPRESSION [None]
  - FIBRIN D DIMER INCREASED [None]
  - LIVER INJURY [None]
  - OVERDOSE [None]
  - PLATELET COUNT DECREASED [None]
  - RENAL FAILURE CHRONIC [None]
  - SUICIDE ATTEMPT [None]
